FAERS Safety Report 4587540-X (Version None)
Quarter: 2005Q1

REPORT INFORMATION
  Report Type: 
  Country: None (occurrence: None)
  Receive Date: 20050215
  Receipt Date: 20040224
  Transmission Date: 20050727
  Serious: No
  Sender: FDA-Public Use
  Company Number: C04-T-029

PATIENT
  Sex: Male

DRUGS (1)
  1. PHENAZYOPYRIDINE HYDROCHLORIDE [Suspect]

REACTIONS (1)
  - DRUG ERUPTION [None]
